FAERS Safety Report 9931768 (Version 3)
Quarter: 2014Q2

REPORT INFORMATION
  Report Type: Spontaneous
  Country: US (occurrence: None)
  Receive Date: 20140226
  Receipt Date: 20140612
  Transmission Date: 20141212
  Serious: Yes (Other)
  Sender: FDA-Public Use
  Company Number: CIO14011125

PATIENT
  Age: 51 Year
  Sex: Male
  Weight: 93 kg

DRUGS (6)
  1. NYQUIL COLD + FLU ALCHOL 10% NIGHTTIME RELIEF, CHERRY FLAVOR(ETHANOL 10%, DEXTROMETHPRPHAN HYDROBROMIDE 30 MG, DOXYLAMINE SUCCINATE 12.5 MG, PARACETAMOL 650 MG) ORAL LIQUID, 30ML [Suspect]
     Indication: NASOPHARYNGITIS
     Dosage: 1 ONLY
     Route: 048
     Dates: start: 20140206, end: 20140206
  2. MULTIVITAMINS, PLAIN [Concomitant]
  3. VITAMIN E [Concomitant]
  4. FISH OIL [Concomitant]
  5. GLUCOSAMINE/MSM (GLUCOSAMINE, METHYSULFONYLMETHANE) [Concomitant]
  6. FLAXSEED OIL (LINUM USITATISSIMUM SEED OIL) [Concomitant]

REACTIONS (4)
  - Atrial fibrillation [None]
  - Condition aggravated [None]
  - Dyspnoea exertional [None]
  - Heart rate irregular [None]
